FAERS Safety Report 9421928 (Version 2)
Quarter: 2013Q3

REPORT INFORMATION
  Report Type: Spontaneous
  Country: US (occurrence: US)
  Receive Date: 20130726
  Receipt Date: 20130819
  Transmission Date: 20140515
  Serious: No
  Sender: FDA-Public Use
  Company Number: US-PFIZER INC-2013215012

PATIENT
  Age: 64 Year
  Sex: Male

DRUGS (1)
  1. SUTENT [Suspect]
     Dosage: 12.5 MG, CYCLIC (TAKE 3 TABS DAILY 28 DAY ON, 14 DAYS OFF)
     Route: 048
     Dates: start: 20130312

REACTIONS (1)
  - Malaise [Unknown]
